FAERS Safety Report 6609399-9 (Version None)
Quarter: 2010Q1

REPORT INFORMATION
  Report Type: 
  Country: None (occurrence: None)
  Receive Date: 20100302
  Receipt Date: 20100219
  Transmission Date: 20100710
  Serious: Yes (Hospitalization, Other)
  Sender: FDA-Public Use
  Company Number: US-ELI_LILLY_AND_COMPANY-US201002005996

PATIENT
  Age: 56 Year
  Sex: Female
  Weight: 70.567 kg

DRUGS (17)
  1. GEMCITABINE HCL [Suspect]
     Indication: TRANSITIONAL CELL CARCINOMA
     Dosage: UNK, OTHER
     Route: 042
     Dates: start: 20090204
  2. CETUXIMAB [Suspect]
     Indication: TRANSITIONAL CELL CARCINOMA
     Dosage: UNK, OTHER
     Route: 042
     Dates: start: 20090204
  3. CISPLATIN [Suspect]
     Indication: TRANSITIONAL CELL CARCINOMA
     Dates: start: 20090204
  4. CALCIUM WITH VITAMIN D /00944201/ [Concomitant]
     Indication: VITAMIN SUPPLEMENTATION
     Dosage: 500 MG, DAILY (1/D)
     Route: 048
  5. COLACE [Concomitant]
     Dosage: 100 MG, 2/D
     Route: 048
  6. COMPAZINE [Concomitant]
     Dosage: 10 MG, AS NEEDED
     Route: 048
  7. DEXAMETHASONE [Concomitant]
     Indication: NAUSEA
     Dosage: 8 MG, 2/D
     Route: 048
  8. EMEND [Concomitant]
     Dosage: 80 MG, OTHER
     Route: 048
  9. EMLA [Concomitant]
     Dosage: UNK, AS NEEDED
     Route: 061
  10. FENTANYL-100 [Concomitant]
     Dosage: 100 UG, OTHER
     Route: 062
  11. LORAZEPAM [Concomitant]
     Dosage: 0.5 MG, AS NEEDED
     Route: 048
  12. MINOCYCLINE HCL [Concomitant]
     Dosage: 100 MG, DAILY (1/D)
     Route: 048
  13. ONDANSETRON [Concomitant]
     Dosage: 4 MG, 4/D
     Route: 048
  14. OXYCODONE [Concomitant]
     Indication: PAIN
     Dosage: 5 MG, AS NEEDED
     Route: 048
  15. MIRALAX [Concomitant]
     Dosage: 17 G, UNK
     Route: 048
  16. PRILOSEC [Concomitant]
     Dosage: 20 MG, 2/D
     Route: 048
  17. REGLAN [Concomitant]
     Dosage: 10 MG, 3/D
     Route: 048

REACTIONS (3)
  - DEEP VEIN THROMBOSIS [None]
  - NEUTROPENIA [None]
  - PULMONARY EMBOLISM [None]
